FAERS Safety Report 9904462 (Version 1)
Quarter: 2014Q1

REPORT INFORMATION
  Report Type: Report from Study
  Country: CA (occurrence: CA)
  Receive Date: 20140218
  Receipt Date: 20140218
  Transmission Date: 20141002
  Serious: Yes (Other)
  Sender: FDA-Public Use
  Company Number: CA-JNJFOC-20140207992

PATIENT
  Age: 46 Year
  Sex: Female

DRUGS (6)
  1. SIMPONI [Suspect]
     Indication: ANKYLOSING SPONDYLITIS
     Route: 058
     Dates: start: 20130509
  2. ATENOLOL [Concomitant]
     Route: 048
  3. CODEINE CONTIN [Concomitant]
     Route: 048
  4. CANDESARTAN [Concomitant]
     Route: 048
  5. RABEPRAZOLE [Concomitant]
     Route: 048
  6. NAPROXEN [Concomitant]
     Route: 048

REACTIONS (1)
  - Helicobacter infection [Unknown]
